FAERS Safety Report 5026010-1 (Version None)
Quarter: 2006Q2

REPORT INFORMATION
  Report Type: 
  Country: None (occurrence: None)
  Receive Date: 20060614
  Receipt Date: 20050224
  Transmission Date: 20061013
  Serious: Yes (Hospitalization, Disabling)
  Sender: FDA-Public Use
  Company Number: US-ROCHE-396709

PATIENT
  Age: 19 Year
  Sex: Female
  Weight: 54.4 kg

DRUGS (2)
  1. ACCUTANE [Suspect]
     Indication: ACNE
     Route: 048
     Dates: start: 19990730, end: 19990915
  2. ACCUTANE [Suspect]
     Route: 048
     Dates: start: 19991029, end: 20000526

REACTIONS (46)
  - ABORTION SPONTANEOUS [None]
  - ACNE [None]
  - ANHEDONIA [None]
  - ANXIETY [None]
  - BILIARY DILATATION [None]
  - BLOOD CHOLESTEROL INCREASED [None]
  - BRONCHITIS [None]
  - CELLULITIS [None]
  - CHEST WALL ABSCESS [None]
  - COLITIS [None]
  - COLITIS ULCERATIVE [None]
  - DEPRESSION [None]
  - DRY SKIN [None]
  - EAR PAIN [None]
  - ERYSIPELAS [None]
  - FALL [None]
  - FATIGUE [None]
  - GASTROINTESTINAL DISORDER [None]
  - GASTROINTESTINAL STOMA COMPLICATION [None]
  - GASTROOESOPHAGEAL REFLUX DISEASE [None]
  - HEADACHE [None]
  - INFLAMMATION [None]
  - INFLAMMATORY BOWEL DISEASE [None]
  - INJURY [None]
  - INTESTINAL HAEMORRHAGE [None]
  - LIP DRY [None]
  - MOOD ALTERED [None]
  - MULTI-ORGAN DISORDER [None]
  - MYALGIA [None]
  - NEPHROLITHIASIS [None]
  - OVARIAN CYST [None]
  - POUCHITIS [None]
  - PREGNANCY [None]
  - PROCTITIS [None]
  - RASH [None]
  - RECTAL HAEMORRHAGE [None]
  - RED BLOOD CELL COUNT DECREASED [None]
  - RENAL DISORDER [None]
  - SCOLIOSIS [None]
  - SEXUAL ASSAULT VICTIM [None]
  - SPLENIC CYST [None]
  - TOOTH ABSCESS [None]
  - TOOTHACHE [None]
  - URINARY TRACT INFECTION [None]
  - VAGINAL INFECTION [None]
  - WEIGHT DECREASED [None]
